FAERS Safety Report 4871124-X (Version None)
Quarter: 2005Q4

REPORT INFORMATION
  Report Type: 
  Country: None (occurrence: None)
  Receive Date: 20051229
  Receipt Date: 20051208
  Transmission Date: 20060501
  Serious: Yes (Hospitalization)
  Sender: FDA-Public Use
  Company Number: DK200512003740

PATIENT
  Age: 1 Day
  Sex: Female

DRUGS (1)
  1. FONTEX (FLUOXETINE HYDROCHLORIDE) TABLET [Suspect]
     Indication: DEPRESSION
     Dosage: 20 MG, 3/D, ORAL
     Route: 048
     Dates: start: 20021101, end: 20030201

REACTIONS (2)
  - DRUG EXPOSURE DURING PREGNANCY [None]
  - DRUG WITHDRAWAL SYNDROME NEONATAL [None]
